FAERS Safety Report 7584651-1 (Version None)
Quarter: 2011Q2

REPORT INFORMATION
  Report Type: 
  Country: None (occurrence: None)
  Receive Date: 20110630
  Receipt Date: 20110623
  Transmission Date: 20111010
  Serious: Yes (Other)
  Sender: FDA-Public Use
  Company Number: US-B.I. PHARMACEUTICALS,INC./RIDGEFIELD-2011-BP-13426BP

PATIENT
  Sex: Male

DRUGS (10)
  1. VERPAMIL HCL [Concomitant]
  2. FUROSEMIDE [Concomitant]
  3. PRADAXA [Suspect]
     Indication: ATRIAL FIBRILLATION
     Dosage: 300 MG
     Route: 048
     Dates: start: 20110422, end: 20110427
  4. SKELAXIN [Concomitant]
     Indication: MUSCLE SPASMS
  5. PRADAXA [Suspect]
     Dosage: 150 MG
  6. SPIRONOLACTONE [Concomitant]
  7. SIMVASTATIN [Concomitant]
  8. ALLOPURINOL [Concomitant]
  9. SYNTHROID [Concomitant]
  10. NAPROXEN [Concomitant]
     Indication: ARTHRITIS

REACTIONS (2)
  - SKIN CANCER [None]
  - EPISTAXIS [None]
